FAERS Safety Report 4876831-0 (Version None)
Quarter: 2006Q1

REPORT INFORMATION
  Report Type: 
  Country: None (occurrence: None)
  Receive Date: 20060110
  Receipt Date: 20060105
  Transmission Date: 20060701
  Serious: Yes (Hospitalization)
  Sender: FDA-Public Use
  Company Number: 2006CG00037

PATIENT
  Age: 52 Year
  Sex: Male

DRUGS (1)
  1. ENTOCORT [Suspect]
     Indication: CROHN'S DISEASE
     Route: 048

REACTIONS (3)
  - CONSTIPATION [None]
  - HYPOKALAEMIA [None]
  - INTESTINAL OBSTRUCTION [None]
